FAERS Safety Report 4936764-8 (Version None)
Quarter: 2006Q1

REPORT INFORMATION
  Report Type: 
  Country: None (occurrence: None)
  Receive Date: 20060302
  Receipt Date: 20060206
  Transmission Date: 20060701
  Serious: No
  Sender: FDA-Public Use
  Company Number: 05H-087-0299625-00

PATIENT
  Age: 68 Year
  Sex: Male
  Weight: 67.6 kg

DRUGS (30)
  1. PRECEDEX [Suspect]
     Indication: SEDATION
     Dosage: SEE IMAGE, INTRAVENOUS
     Route: 042
     Dates: start: 20050525, end: 20050525
  2. SEVOFLURANE [Suspect]
     Indication: GENERAL ANAESTHESIA
     Dosage: INHALATION
     Route: 055
     Dates: start: 20050525, end: 20050525
  3. PROPOFOL [Suspect]
     Indication: GENERAL ANAESTHESIA
     Dosage: INTRAVENOUS
     Route: 042
     Dates: start: 20050525, end: 20050525
  4. MIDAZOLAM HCL [Suspect]
     Indication: MITRAL VALVE INCOMPETENCE
     Dosage: INTRAVENOUS
     Route: 042
     Dates: start: 20050525, end: 20050525
  5. VECURONIUM (VECURONIUM) [Suspect]
     Indication: MUSCLE RELAXANT THERAPY
     Dosage: INTRAVENOUS
     Route: 042
     Dates: start: 20050525, end: 20050525
  6. FENTANYL [Suspect]
     Indication: GENERAL ANAESTHESIA
     Dosage: INTRAVENOUS
     Route: 042
     Dates: start: 20050525, end: 20050525
  7. FENTANYL [Suspect]
     Indication: POSTOPERATIVE ANALGESIA
     Dosage: INTRAVENOUS
     Route: 042
     Dates: start: 20050525, end: 20050525
  8. METHYLDIGOXIN [Concomitant]
  9. CAPTOPRIL [Concomitant]
  10. METOPROLOL TARTRATE [Concomitant]
  11. NIFEDIPINE [Concomitant]
  12. FUROSEMIDE [Concomitant]
  13. GLYBURIDE [Concomitant]
  14. AMPICILLIN SODIUM/SULBACTAM SODIUM [Concomitant]
  15. SODIUM METHYLPREDNISOLONE SUCCINATE (METHYLPREDNISOLONE SODIUM SUCCINA [Concomitant]
  16. URINASTATIN (URINASTATIN) [Concomitant]
  17. EPHEDRINE SUL CAP [Concomitant]
  18. CARPERITIDE (CARPERITIDE) [Concomitant]
  19. HEPARIN [Concomitant]
  20. PROTAMINE SULFATE [Concomitant]
  21. NAFAMOSTAT MESILATE (NAFAMOSTAT MESILATE) [Concomitant]
  22. DOPAMINE HCL [Concomitant]
  23. NORADRENALINE (NOREPINEPHRINE) [Concomitant]
  24. ALPROSTADIL [Concomitant]
  25. NICARDIPINE (NICARDIPINE) [Concomitant]
  26. CARBAZOCHROME SODIUM SULFONATE (CARBAZOCHROME SODIUM SULFONATE) [Concomitant]
  27. TRANEXAMIC ACID (TRANEXAMIC ACID) [Concomitant]
  28. INSULIN HUMAN (INSULIN HUMAN) [Concomitant]
  29. MILRINONE (MILRINONE) [Concomitant]
  30. NEOSTIGMINE (NEOSTIGMINE) [Concomitant]

REACTIONS (4)
  - GLOSSOPTOSIS [None]
  - MITRAL VALVE REPLACEMENT [None]
  - OXYGEN SATURATION DECREASED [None]
  - RENAL IMPAIRMENT [None]
